FAERS Safety Report 17850208 (Version 6)
Quarter: 2025Q3

REPORT INFORMATION
  Report Type: Report from Study
  Country: CA (occurrence: CA)
  Receive Date: 20200602
  Receipt Date: 20250710
  Transmission Date: 20251021
  Serious: Yes (Hospitalization, Disabling, Other)
  Sender: PFIZER
  Company Number: CA-PFIZER INC-2020212676

PATIENT
  Age: 50 Year
  Sex: Male

DRUGS (77)
  1. LORAZEPAM [Suspect]
     Active Substance: LORAZEPAM
  2. ASPIRIN [Suspect]
     Active Substance: ASPIRIN
  3. ADVAIR HFA [Suspect]
     Active Substance: FLUTICASONE PROPIONATE\SALMETEROL XINAFOATE
     Indication: Asthma
  4. ADVAIR HFA [Suspect]
     Active Substance: FLUTICASONE PROPIONATE\SALMETEROL XINAFOATE
     Dosage: 2 DF, 2X/DAY
  5. ADVAIR HFA [Suspect]
     Active Substance: FLUTICASONE PROPIONATE\SALMETEROL XINAFOATE
     Dosage: 4 DF, 1X/DAY
  6. ADVAIR HFA [Suspect]
     Active Substance: FLUTICASONE PROPIONATE\SALMETEROL XINAFOATE
     Dosage: INHALATION POWDER
  7. ADVAIR HFA [Suspect]
     Active Substance: FLUTICASONE PROPIONATE\SALMETEROL XINAFOATE
     Dosage: 2 DF, 2X/DAY
  8. .ALPHA.-TOCOPHEROL, D- [Suspect]
     Active Substance: .ALPHA.-TOCOPHEROL, D-
     Dosage: 400 MG, 1X/DAY
  9. .ALPHA.-TOCOPHEROL, D- [Suspect]
     Active Substance: .ALPHA.-TOCOPHEROL, D-
  10. .ALPHA.-TOCOPHEROL ACETATE, D- [Suspect]
     Active Substance: .ALPHA.-TOCOPHEROL ACETATE, D-
     Dosage: 400 MG, 1X/DAY
  11. .ALPHA.-TOCOPHEROL ACETATE, D- [Suspect]
     Active Substance: .ALPHA.-TOCOPHEROL ACETATE, D-
  12. DOCONEXENT\ICOSAPENT [Suspect]
     Active Substance: DOCONEXENT\ICOSAPENT
  13. DOXYCYCLINE [Suspect]
     Active Substance: DOXYCYCLINE
     Dosage: 100 MG, 2X/DAY
  14. DOXYCYCLINE HYCLATE [Suspect]
     Active Substance: DOXYCYCLINE HYCLATE
     Dosage: 100 MG, 2X/DAY
  15. DOXYCYCLINE HYCLATE [Suspect]
     Active Substance: DOXYCYCLINE HYCLATE
     Dosage: 200 MG, 1X/DAY
  16. GLUCOSAMINE [Suspect]
     Active Substance: GLUCOSAMINE
  17. ALBUTEROL\GUAIFENESIN [Suspect]
     Active Substance: ALBUTEROL\GUAIFENESIN
  18. LOSEC [Concomitant]
     Active Substance: OMEPRAZOLE
     Dosage: 20 MG, 1X/DAY
  19. LOSEC [Concomitant]
     Active Substance: OMEPRAZOLE
  20. MEPOLIZUMAB [Suspect]
     Active Substance: MEPOLIZUMAB
     Indication: Asthma
     Route: 058
  21. MEPOLIZUMAB [Suspect]
     Active Substance: MEPOLIZUMAB
     Route: 058
  22. MEPOLIZUMAB [Suspect]
     Active Substance: MEPOLIZUMAB
     Indication: Asthma
     Dosage: 100 MG, MONTHLY
     Route: 042
  23. MEPOLIZUMAB [Suspect]
     Active Substance: MEPOLIZUMAB
     Route: 042
  24. MEPOLIZUMAB [Suspect]
     Active Substance: MEPOLIZUMAB
  25. DOCONEXENT\ICOSAPENT [Suspect]
     Active Substance: DOCONEXENT\ICOSAPENT
  26. DOCONEXENT\ICOSAPENT [Suspect]
     Active Substance: DOCONEXENT\ICOSAPENT
  27. OMEPRAZOLE [Suspect]
     Active Substance: OMEPRAZOLE
     Route: 048
  28. OMEPRAZOLE [Suspect]
     Active Substance: OMEPRAZOLE
     Route: 048
  29. OMEPRAZOLE SODIUM [Suspect]
     Active Substance: OMEPRAZOLE SODIUM
     Route: 048
  30. PREDNISONE [Suspect]
     Active Substance: PREDNISONE
     Indication: Addison^s disease
     Dosage: 5 MG, 1X/DAY
  31. PREDNISONE [Suspect]
     Active Substance: PREDNISONE
     Dosage: 35 MG, 1X/DAY
  32. PREDNISONE [Suspect]
     Active Substance: PREDNISONE
     Dosage: 5 MG, 1X/DAY
  33. PREDNISONE [Suspect]
     Active Substance: PREDNISONE
  34. PREDNISONE ACETATE [Suspect]
     Active Substance: PREDNISONE ACETATE
  35. ALBUTEROL [Suspect]
     Active Substance: ALBUTEROL
     Indication: Asthma
  36. ALBUTEROL [Suspect]
     Active Substance: ALBUTEROL
     Dosage: 5 DF, 2X/DAY
  37. ALBUTEROL [Suspect]
     Active Substance: ALBUTEROL
     Dosage: 10 DF, 1X/DAY
  38. SODIUM CHLORIDE [Suspect]
     Active Substance: SODIUM CHLORIDE
  39. SODIUM CHLORIDE [Suspect]
     Active Substance: SODIUM CHLORIDE
  40. SPIRIVA [Suspect]
     Active Substance: TIOTROPIUM BROMIDE MONOHYDRATE
     Indication: Asthma
     Dosage: 2 DF, 1X/DAY
  41. SPIRIVA [Suspect]
     Active Substance: TIOTROPIUM BROMIDE MONOHYDRATE
     Dosage: 3 DF, 1X/DAY
  42. TIOTROPIUM BROMIDE MONOHYDRATE [Suspect]
     Active Substance: TIOTROPIUM BROMIDE MONOHYDRATE
     Dosage: 5 UG, 1X/DAY
  43. TIOTROPIUM BROMIDE MONOHYDRATE [Suspect]
     Active Substance: TIOTROPIUM BROMIDE MONOHYDRATE
     Dosage: 3 UG, 1X/DAY
  44. TIOTROPIUM BROMIDE MONOHYDRATE [Suspect]
     Active Substance: TIOTROPIUM BROMIDE MONOHYDRATE
     Dosage: 5 UG, 1X/DAY
  45. TIOTROPIUM BROMIDE MONOHYDRATE [Suspect]
     Active Substance: TIOTROPIUM BROMIDE MONOHYDRATE
     Dosage: 5 MG, 1X/DAY
  46. TIOTROPIUM BROMIDE MONOHYDRATE [Suspect]
     Active Substance: TIOTROPIUM BROMIDE MONOHYDRATE
     Dosage: 3 DF, 1X/DAY
  47. TOBRAMYCIN [Suspect]
     Active Substance: TOBRAMYCIN
     Dosage: 320 MG, 1X/DAY
  48. TOBRAMYCIN [Suspect]
     Active Substance: TOBRAMYCIN
     Dosage: 160 MG, 2X/DAY
     Route: 055
  49. TOBRAMYCIN SULFATE [Suspect]
     Active Substance: TOBRAMYCIN SULFATE
     Dosage: 320 MG, 1X/DAY
  50. VENTOLIN [Suspect]
     Active Substance: ALBUTEROL SULFATE
     Indication: Asthma
     Dosage: 5 DF, 2X/DAY
  51. VENTOLIN [Suspect]
     Active Substance: ALBUTEROL SULFATE
  52. VENTOLIN [Suspect]
     Active Substance: ALBUTEROL SULFATE
     Dosage: 5 DF, 2X/DAY
  53. VENTOLIN [Suspect]
     Active Substance: ALBUTEROL SULFATE
  54. CYANOCOBALAMIN [Suspect]
     Active Substance: CYANOCOBALAMIN
     Dosage: 10 MG, 1X/DAY
  55. VITAMIN D3 [Suspect]
     Active Substance: CHOLECALCIFEROL
     Dosage: 20000 UG, 1X/DAY
  56. VITAMIN K [Suspect]
     Active Substance: PHYTONADIONE
  57. VITAMIN K1 [Suspect]
     Active Substance: PHYTONADIONE
     Dosage: 10 MG, 1X/DAY
  58. VITAMIN K1 [Suspect]
     Active Substance: PHYTONADIONE
     Dosage: 400 MG, 1X/DAY
  59. FISH OIL [Suspect]
     Active Substance: FISH OIL
  60. VITAMIN D NOS [Suspect]
     Active Substance: CHOLECALCIFEROL\ERGOCALCIFEROL
     Dosage: 20000 UG, 1X/DAY
  61. UNSPECIFIED INGREDIENT [Suspect]
     Active Substance: UNSPECIFIED INGREDIENT
  62. SALICYLIC ACID [Suspect]
     Active Substance: SALICYLIC ACID
  63. CYANOCOBALAMIN [Suspect]
     Active Substance: CYANOCOBALAMIN
     Dosage: 10 MG, 1X/DAY
     Route: 065
  64. ERGOCALCIFEROL [Suspect]
     Active Substance: ERGOCALCIFEROL
     Dosage: 2000 MG, 1X/DAY
     Route: 065
  65. SPIRIVA RESPIMAT [Suspect]
     Active Substance: TIOTROPIUM BROMIDE
     Dosage: 3 DF, 1X/DAY
     Route: 055
  66. PULMICORT TURBUHALER [Concomitant]
     Active Substance: BUDESONIDE
     Indication: Asthma
     Dosage: 600 UG, 2X/DAY
  67. PULMICORT TURBUHALER [Concomitant]
     Active Substance: BUDESONIDE
     Dosage: 3 DF, 2X/DAY
  68. PULMICORT TURBUHALER [Concomitant]
     Active Substance: BUDESONIDE
     Dosage: 2 DF, 2X/DAY
  69. PULMICORT TURBUHALER [Concomitant]
     Active Substance: BUDESONIDE
     Dosage: 6 DF, 1X/DAY
  70. PULMICORT TURBUHALER [Concomitant]
     Active Substance: BUDESONIDE
     Dosage: 3 DF, 2X/DAY
  71. VITAMINS [Concomitant]
     Active Substance: VITAMINS
     Dosage: 2 DF, 1X/DAY
  72. SODIUM CHLORIDE [Concomitant]
     Active Substance: SODIUM CHLORIDE
  73. CEFTAZIDIME [Concomitant]
     Active Substance: CEFTAZIDIME
     Route: 065
  74. MEROPENEM [Concomitant]
     Active Substance: MEROPENEM
     Route: 065
  75. METHYLPREDNISOLONE [Concomitant]
     Active Substance: METHYLPREDNISOLONE
     Route: 065
  76. PANCRELIPASE [Concomitant]
     Active Substance: PANCRELIPASE
     Route: 065
  77. .ALPHA.-TOCOPHEROL [Concomitant]
     Active Substance: .ALPHA.-TOCOPHEROL
     Dosage: 400 UG, 1X/DAY

REACTIONS (9)
  - Addison^s disease [Not Recovered/Not Resolved]
  - Asthma [Not Recovered/Not Resolved]
  - Dyspnoea [Not Recovered/Not Resolved]
  - Infection [Not Recovered/Not Resolved]
  - Loss of personal independence in daily activities [Not Recovered/Not Resolved]
  - Productive cough [Not Recovered/Not Resolved]
  - Sleep disorder due to a general medical condition [Not Recovered/Not Resolved]
  - Therapeutic product effect incomplete [Not Recovered/Not Resolved]
  - Wheezing [Not Recovered/Not Resolved]
